FAERS Safety Report 12142005 (Version 1)
Quarter: 2016Q1

REPORT INFORMATION
  Report Type: Spontaneous
  Country: IT (occurrence: IT)
  Receive Date: 20160303
  Receipt Date: 20160303
  Transmission Date: 20160526
  Serious: Yes (Other)
  Sender: FDA-Public Use
  Company Number: IT-BAYER-2016-039667

PATIENT
  Age: 13 Year
  Sex: Female

DRUGS (3)
  1. ONCASPAR [Concomitant]
     Active Substance: PEGASPARGASE
     Indication: ACUTE MYELOID LEUKAEMIA
     Dosage: 3500 IU, OW
     Route: 042
  2. CYTOSINE ARABINOSIDE [Concomitant]
     Active Substance: CYTARABINE
     Indication: ACUTE MYELOID LEUKAEMIA
     Dosage: 00 MG/DAY I.V. IN A TOTAL 8- DAYS/CYCLE
     Route: 042
  3. SORAFENIB (RAF KINASE INHIBITOR) [Suspect]
     Active Substance: SORAFENIB
     Indication: ACUTE MYELOID LEUKAEMIA
     Dosage: 600 MG/DAY ORALLY
     Route: 048

REACTIONS (2)
  - Off label use [None]
  - Graft versus host disease [None]
